FAERS Safety Report 6061472-2 (Version None)
Quarter: 2009Q1

REPORT INFORMATION
  Report Type: 
  Country: None (occurrence: None)
  Receive Date: 20090129
  Receipt Date: 20090129
  Transmission Date: 20090719
  Serious: Yes (Other)
  Sender: FDA-Public Use
  Company Number: None

PATIENT
  Age: 27 Year
  Sex: Male
  Weight: 108.8633 kg

DRUGS (2)
  1. GEMFIBROZIL [Suspect]
     Indication: BLOOD CHOLESTEROL
     Dosage: 1 2X DAILY PO
     Route: 048
     Dates: start: 20090102, end: 20090128
  2. GEMFIBROZIL [Suspect]
     Indication: BLOOD TRIGLYCERIDES INCREASED
     Dosage: 1 2X DAILY PO
     Route: 048
     Dates: start: 20090102, end: 20090128

REACTIONS (2)
  - AMBLYOPIA [None]
  - VISION BLURRED [None]
